FAERS Safety Report 6765070 (Version 3)
Quarter: 2012Q4

REPORT INFORMATION
  Report Type: 
  Country: CA (occurrence: CA)
  Receive Date: 20080922
  Receipt Date: 20121111
  Transmission Date: 20130627
  Serious: Yes (Death, Other)
  Sender: FDA-Public Use
  Company Number: PHHY2007CA00856

PATIENT
  Sex: Female

DRUGS (2)
  1. SANDOSTATIN LAR [Suspect]
     Indication: CARCINOID TUMOUR
     Dosage: 30 mg, QMO
     Route: 030
     Dates: start: 20051202
  2. SANDOSTATIN LAR [Suspect]
     Dosage: 40 mg, QMO
     Route: 030
     Dates: start: 20071107

REACTIONS (18)
  - Death [Fatal]
  - Dysstasia [Unknown]
  - Malignant neoplasm progression [Not Recovered/Not Resolved]
  - Ascites [Not Recovered/Not Resolved]
  - Weight decreased [Not Recovered/Not Resolved]
  - Hypertension [Unknown]
  - Blood pressure increased [Unknown]
  - Asthenia [Unknown]
  - Gait disturbance [Unknown]
  - Confusional state [Unknown]
  - Weight increased [Unknown]
  - Oedema peripheral [Unknown]
  - Injection site pain [Recovering/Resolving]
  - Diarrhoea [Unknown]
  - Flatulence [Unknown]
  - Hyperglycaemia [Unknown]
  - Blood glucose increased [Unknown]
  - Bradycardia [Unknown]
